FAERS Safety Report 5203198-0 (Version None)
Quarter: 2006Q4

REPORT INFORMATION
  Report Type: 
  Country: None (occurrence: None)
  Receive Date: 20061027
  Receipt Date: 20060125
  Transmission Date: 20070319
  Serious: Yes (Hospitalization, Disabling, Other)
  Sender: FDA-Public Use
  Company Number: HQWYE532927JAN06

PATIENT
  Sex: Female
  Weight: 83.99 kg

DRUGS (6)
  1. PREMARIN [Suspect]
     Indication: ATROPHIC VULVOVAGINITIS
     Dosage: 0.625 ON MONDAY, WEDNESDAY AND FRIDAY, ORAL
     Route: 048
     Dates: start: 19950101, end: 20051201
  2. PREMARIN [Suspect]
     Indication: MENOPAUSAL SYMPTOMS
     Dosage: 0.625 ON MONDAY, WEDNESDAY AND FRIDAY, ORAL
     Route: 048
     Dates: start: 19950101, end: 20051201
  3. PREMARIN [Suspect]
     Indication: OSTEOPOROSIS
     Dosage: 0.625 ON MONDAY, WEDNESDAY AND FRIDAY, ORAL
     Route: 048
     Dates: start: 19950101, end: 20051201
  4. PREMARIN [Suspect]
     Indication: PROPHYLAXIS
     Dosage: 0.625 ON MONDAY, WEDNESDAY AND FRIDAY, ORAL
     Route: 048
     Dates: start: 19950101, end: 20051201
  5. PRILOSEC [Concomitant]
  6. CELEXA [Concomitant]

REACTIONS (1)
  - BREAST CANCER STAGE I [None]
